FAERS Safety Report 7502586-7 (Version None)
Quarter: 2011Q1

REPORT INFORMATION
  Report Type: 
  Country: None (occurrence: None)
  Receive Date: 20110318
  Receipt Date: 20101011
  Transmission Date: 20110831
  Serious: Yes (Other)
  Sender: FDA-Public Use
  Company Number: 2010SP054440

PATIENT
  Age: 58 Year
  Sex: Female

DRUGS (2)
  1. RIBAVIRIN [Concomitant]
  2. PEG-INTRON [Suspect]
     Indication: HEPATITIS C
     Dosage: 60 MCG;QW;SC, 120 MCG; SC
     Route: 058
     Dates: start: 20100601

REACTIONS (5)
  - OROPHARYNGEAL PAIN [None]
  - DRUG DOSE OMISSION [None]
  - PSORIASIS [None]
  - ABDOMINAL PAIN UPPER [None]
  - OVERDOSE [None]
